FAERS Safety Report 8560770-8 (Version None)
Quarter: 2012Q3

REPORT INFORMATION
  Report Type: 
  Country: None (occurrence: None)
  Receive Date: 20120802
  Receipt Date: 20120731
  Transmission Date: 20120928
  Serious: No
  Sender: FDA-Public Use
  Company Number: US-PFIZER INC-2012158661

PATIENT
  Sex: Male
  Weight: 69.388 kg

DRUGS (7)
  1. SUTENT [Suspect]
     Indication: LUNG NEOPLASM MALIGNANT
  2. SUTENT [Suspect]
     Indication: NEOPLASM MALIGNANT
  3. ANDROGEL [Concomitant]
     Indication: BLOOD TESTOSTERONE ABNORMAL
     Dosage: UNK
  4. SUTENT [Suspect]
     Indication: HEPATIC CANCER METASTATIC
     Dosage: 12.5 MG, 3X/DAY (TAKE ONE 12.5MG CAPSULE THREE TIMES A DAY FOR A TOTAL OF 37.5MG / DAY)
     Dates: start: 20120618
  5. SUTENT [Suspect]
     Indication: HEPATIC NEOPLASM MALIGNANT
  6. ANDROGEL [Concomitant]
     Indication: MUSCULOSKELETAL DISORDER
  7. IBUPROFEN [Concomitant]
     Indication: HEPATIC PAIN
     Dosage: UNK

REACTIONS (13)
  - ORAL DISCOMFORT [None]
  - TONGUE COATED [None]
  - TONGUE DISORDER [None]
  - OFF LABEL USE [None]
  - DYSGEUSIA [None]
  - DIARRHOEA [None]
  - PRURITUS [None]
  - SKIN EXFOLIATION [None]
  - DRUG SCREEN FALSE POSITIVE [None]
  - NAUSEA [None]
  - FAECES DISCOLOURED [None]
  - FATIGUE [None]
  - GLOSSODYNIA [None]
